FAERS Safety Report 8956837 (Version 1)
Quarter: 2012Q4

REPORT INFORMATION
  Report Type: 
  Country: JP (occurrence: JP)
  Receive Date: 20121210
  Receipt Date: 20121210
  Transmission Date: 20130627
  Serious: Yes (Death, Other)
  Sender: FDA-Public Use
  Company Number: US-009507513-1212JPN002943

PATIENT
  Age: 90 Year
  Sex: Male
  Weight: 39 kg

DRUGS (20)
  1. GLACTIV [Suspect]
     Dosage: 50 mg daily
     Route: 048
     Dates: start: 20100116
  2. DIOVAN [Suspect]
     Indication: HYPERTENSION
     Dosage: 40 mg, qd
     Route: 048
     Dates: start: 20080626, end: 20091015
  3. DIOVAN [Suspect]
     Dosage: 80 mg, qd
     Route: 048
     Dates: start: 20091016
  4. ZYLORIC [Suspect]
     Dosage: 100 mg, UNK
     Route: 048
     Dates: start: 20080626
  5. BAYSLOWTH [Suspect]
     Dosage: 0.2 mg, UNK
     Route: 048
     Dates: start: 20080626
  6. RENIVEZE [Concomitant]
     Indication: HYPERTENSION
     Dosage: 2.5 mg daily
     Route: 048
     Dates: start: 20091015
  7. ALCENOL [Concomitant]
     Indication: HYPERTENSION
     Dosage: 50 mg, UNK
     Dates: start: 20060530, end: 20081002
  8. DICHLOTRIDE [Concomitant]
     Indication: HYPERTENSION
     Dosage: 25 mg, UNK
     Route: 048
     Dates: start: 20070420, end: 20100427
  9. CLARUTE [Concomitant]
     Indication: HYPERTENSION
     Dosage: 100 mg, UNK
     Route: 048
     Dates: start: 20081002, end: 20091015
  10. NORVASC [Concomitant]
     Indication: HYPERTENSION
     Dosage: 5 mg, UNK
     Route: 048
     Dates: start: 20060530, end: 20080829
  11. AMLODIPINE [Concomitant]
     Indication: HYPERTENSION
     Dosage: 5 mg, UNK
     Route: 048
     Dates: start: 20080829
  12. TRICHLORMETHIAZIDE [Concomitant]
     Indication: HYPERTENSION
     Dosage: 2 mg, UNK
     Route: 048
     Dates: start: 20100427
  13. LIPODOWN [Concomitant]
     Dosage: 5 mg, UNK
     Route: 048
     Dates: start: 20070723, end: 20071107
  14. CRESTOR [Concomitant]
     Dosage: 5 mg, UNK
     Dates: start: 20071108
  15. CRESTOR [Concomitant]
     Dosage: 2.5 mg, UNK
     Route: 048
  16. URINORM [Concomitant]
     Dosage: 50 mg, UNK
     Route: 048
     Dates: start: 20071109, end: 20080624
  17. GLYBURIDE [Concomitant]
     Dosage: 1.25 mg, UNK
     Dates: start: 20060530, end: 20061220
  18. AMARYL [Concomitant]
     Dosage: 3 mg, UNK
     Route: 048
     Dates: start: 20061221, end: 20100327
  19. LASIX (FUROSEMIDE) [Concomitant]
     Dosage: 20 mg, UNK
     Route: 048
     Dates: start: 20090707
  20. DOMPERIDONE [Concomitant]
     Dosage: 10 mg, UNK
     Route: 048
     Dates: start: 20100511

REACTIONS (3)
  - Blood pressure diastolic decreased [Fatal]
  - Renal failure chronic [Fatal]
  - Blood creatinine increased [Fatal]
